FAERS Safety Report 23942221 (Version 1)
Quarter: 2024Q2

REPORT INFORMATION
  Report Type: Other
  Country: US (occurrence: None)
  Receive Date: 20240605
  Receipt Date: 20240605
  Transmission Date: 20240716
  Serious: Yes (Hospitalization)
  Sender: FDA-Public Use
  Company Number: US-ROCHE-3575891

PATIENT
  Age: 58 Year
  Sex: Male

DRUGS (2)
  1. HEMLIBRA [Suspect]
     Active Substance: EMICIZUMAB-KXWH
     Indication: Haemophilia
     Dosage: INYECTAR 0.7 MILI LITROS (105MG) SUBCUTANEAMENTE EVERY FRIDAY MORNING
     Route: 058
  2. HEMLIBRA [Suspect]
     Active Substance: EMICIZUMAB-KXWH
     Indication: Acute respiratory failure

REACTIONS (3)
  - Wound infection [Unknown]
  - Pneumonia [Unknown]
  - Haemoglobin decreased [Unknown]
